FAERS Safety Report 8004851-6 (Version None)
Quarter: 2011Q4

REPORT INFORMATION
  Report Type: 
  Country: None (occurrence: None)
  Receive Date: 20111223
  Receipt Date: 20111223
  Transmission Date: 20120403
  Serious: Yes (Life-Threatening)
  Sender: FDA-Public Use
  Company Number: None

PATIENT
  Sex: Female
  Weight: 94.9 kg

DRUGS (1)
  1. MORPHINE SULFATE [Suspect]
     Dosage: 4MG
     Route: 042

REACTIONS (2)
  - CARDIAC ARREST [None]
  - BRADYCARDIA [None]
